FAERS Safety Report 6119587-6 (Version None)
Quarter: 2009Q1

REPORT INFORMATION
  Report Type: 
  Country: None (occurrence: None)
  Receive Date: 20090316
  Receipt Date: 20090305
  Transmission Date: 20090719
  Serious: Yes (Hospitalization)
  Sender: FDA-Public Use
  Company Number: GB-JNJFOC-20090301949

PATIENT
  Sex: Female
  Weight: 69 kg

DRUGS (5)
  1. REMICADE [Suspect]
     Indication: CROHN'S DISEASE
     Route: 042
  2. MULTI-VITAMIN [Concomitant]
  3. CALCICHEW [Concomitant]
  4. PREDNISOLONE [Concomitant]
     Indication: CROHN'S DISEASE
  5. AZATHIOPRINE [Concomitant]
     Indication: CROHN'S DISEASE

REACTIONS (1)
  - ASTHMA [None]
